FAERS Safety Report 9643772 (Version 4)
Quarter: 2014Q1

REPORT INFORMATION
  Report Type: Spontaneous
  Country: BR (occurrence: BR)
  Receive Date: 20131024
  Receipt Date: 20140123
  Transmission Date: 20141002
  Serious: Yes (Hospitalization)
  Sender: FDA-Public Use
  Company Number: BR-PFIZER INC-2013301349

PATIENT
  Age: 4 Year
  Sex: Male

DRUGS (1)
  1. GENOTROPIN [Suspect]
     Dosage: 0.7MG, 6 TIMES PER WEEK
     Dates: start: 2013, end: 2013

REACTIONS (2)
  - Product quality issue [Recovered/Resolved]
  - Injection site injury [Recovered/Resolved]
